FAERS Safety Report 5251543-2 (Version None)
Quarter: 2007Q1

REPORT INFORMATION
  Report Type: 
  Country: None (occurrence: None)
  Receive Date: 20070228
  Receipt Date: 20060525
  Transmission Date: 20070707
  Serious: No
  Sender: FDA-Public Use
  Company Number: US-GLAXOSMITHKLINE-A0606935A

PATIENT
  Age: 52 Year
  Sex: Female

DRUGS (5)
  1. LAMICTAL [Suspect]
     Indication: BIPOLAR DISORDER
     Dosage: 25MG PER DAY
     Route: 048
     Dates: start: 20060510, end: 20060523
  2. LITHIUM CARBONATE [Concomitant]
  3. COREG [Concomitant]
  4. LAMISIL [Concomitant]
  5. NORVASC [Concomitant]

REACTIONS (2)
  - CRYING [None]
  - RASH [None]
